FAERS Safety Report 16595471 (Version 3)
Quarter: 2020Q3

REPORT INFORMATION
  Report Type: Spontaneous
  Country: US (occurrence: US)
  Receive Date: 20190719
  Receipt Date: 20200716
  Transmission Date: 20201102
  Serious: No
  Sender: FDA-Public Use
  Company Number: US-BIOGEN-2019BI00764198

PATIENT
  Sex: Female

DRUGS (2)
  1. TECFIDERA [Suspect]
     Active Substance: DIMETHYL FUMARATE
     Indication: MULTIPLE SCLEROSIS
     Route: 048
     Dates: start: 20130422, end: 20200713
  2. TECFIDERA [Suspect]
     Active Substance: DIMETHYL FUMARATE
     Route: 048

REACTIONS (7)
  - Multiple allergies [Not Recovered/Not Resolved]
  - Flushing [Unknown]
  - Rash [Not Recovered/Not Resolved]
  - Macular degeneration [Unknown]
  - Paraesthesia [Unknown]
  - Ocular hyperaemia [Not Recovered/Not Resolved]
  - Tooth fracture [Not Recovered/Not Resolved]
